FAERS Safety Report 9648760 (Version 2)
Quarter: 2013Q4

REPORT INFORMATION
  Report Type: Spontaneous
  Country: GB (occurrence: GB)
  Receive Date: 20131028
  Receipt Date: 20131028
  Transmission Date: 20140711
  Serious: Yes (Hospitalization, Disabling)
  Sender: FDA-Public Use
  Company Number: GB-IPSEN BIOPHARMACEUTICALS, INC.-2013-0891

PATIENT
  Age: 38 Year
  Sex: Female

DRUGS (2)
  1. BOTOX (NON IPSEN PRODUCT) [Suspect]
     Indication: HYPERTONIC BLADDER
     Dosage: NOT REPORTED
     Route: 043
     Dates: start: 201207, end: 201207
  2. BOTOX (NON IPSEN PRODUCT) [Suspect]
     Indication: OFF LABEL USE

REACTIONS (3)
  - Myelitis transverse [Recovered/Resolved with Sequelae]
  - Hypoaesthesia [Recovered/Resolved with Sequelae]
  - Asthenia [Recovered/Resolved with Sequelae]
